FAERS Safety Report 8852538 (Version 3)
Quarter: 2012Q4

REPORT INFORMATION
  Report Type: 
  Country: CA (occurrence: CA)
  Receive Date: 20121022
  Receipt Date: 20121123
  Transmission Date: 20130627
  Serious: Yes (Hospitalization, Other)
  Sender: FDA-Public Use
  Company Number: PHHY2011CA112808

PATIENT
  Age: 81 None
  Sex: Female

DRUGS (10)
  1. ACLASTA [Suspect]
     Indication: OSTEOPOROSIS
     Dosage: UNK UKN, UNK
     Route: 042
     Dates: start: 20111125
  2. TYLENOL [Concomitant]
  3. EZETROL [Concomitant]
  4. ATORVASTATIN [Concomitant]
  5. AMLODIPINE [Concomitant]
  6. SYNTHROID [Concomitant]
  7. CALCIUM [Concomitant]
  8. VITAMIN D [Concomitant]
  9. POTASSIUM [Concomitant]
     Dosage: 100 mg, UNK
  10. OMEGA-3 [Concomitant]

REACTIONS (6)
  - Clostridium difficile infection [Unknown]
  - Diarrhoea [Unknown]
  - Bacterial infection [Unknown]
  - Musculoskeletal pain [Unknown]
  - Pain in extremity [Unknown]
  - Malaise [Not Recovered/Not Resolved]
